FAERS Safety Report 17488901 (Version 1)
Quarter: 2020Q1

REPORT INFORMATION
  Report Type: Spontaneous
  Country: US (occurrence: US)
  Receive Date: 20200303
  Receipt Date: 20200303
  Transmission Date: 20200409
  Serious: Yes (Hospitalization, Other)
  Sender: FDA-Public Use
  Company Number: US-PFIZER INC-2020092027

PATIENT
  Age: 78 Year
  Sex: Female
  Weight: 78.46 kg

DRUGS (3)
  1. SILDENAFIL CITRATE. [Suspect]
     Active Substance: SILDENAFIL CITRATE
     Dosage: UNK
  2. REMODULIN [Suspect]
     Active Substance: TREPROSTINIL
     Indication: PULMONARY ARTERIAL HYPERTENSION
     Dosage: 0.1 UG/KG, UNK
     Route: 042
     Dates: start: 20191231
  3. OPSUMIT [Suspect]
     Active Substance: MACITENTAN
     Dosage: UNK

REACTIONS (8)
  - Back pain [Unknown]
  - Pain in jaw [Not Recovered/Not Resolved]
  - Dyspnoea [Unknown]
  - Pulmonary oedema [Unknown]
  - Hypotension [Unknown]
  - Tachycardia [Unknown]
  - Hypoxia [Unknown]
  - Headache [Not Recovered/Not Resolved]

NARRATIVE: CASE EVENT DATE: 20200110
